FAERS Safety Report 10035245 (Version 1)
Quarter: 2014Q1

REPORT INFORMATION
  Report Type: Spontaneous
  Country: US (occurrence: None)
  Receive Date: 20140306
  Receipt Date: 20140306
  Transmission Date: 20141002
  Serious: Yes (Hospitalization)
  Sender: FDA-Public Use
  Company Number: 163-21880-13062699

PATIENT
  Age: 72 Year
  Sex: Male

DRUGS (1)
  1. REVLIMID [Suspect]
     Indication: PLASMA CELL MYELOMA
     Dosage: 2.5 MG, 1 CAP QOD FOR 21 DAYS, THEN 7 DAYS OFF, PO 02/2013 - TEMPORARILY INTERRUPTED THERAPY DATES
     Dates: start: 201302

REACTIONS (1)
  - Thrombosis [None]
